FAERS Safety Report 7489462-3 (Version None)
Quarter: 2011Q2

REPORT INFORMATION
  Report Type: 
  Country: None (occurrence: None)
  Receive Date: 20110518
  Receipt Date: 20110510
  Transmission Date: 20111010
  Serious: Yes (Other)
  Sender: FDA-Public Use
  Company Number: US-RB-022612-11

PATIENT
  Age: 28 Year
  Sex: Female

DRUGS (2)
  1. SUBUTEX [Suspect]
     Indication: DRUG DEPENDENCE
     Route: 060
     Dates: start: 20110217
  2. XANAX [Suspect]
     Indication: ANXIETY
     Route: 048
     Dates: end: 20110217

REACTIONS (9)
  - DRUG WITHDRAWAL SYNDROME [None]
  - BLOOD DISORDER [None]
  - TREMOR [None]
  - DECREASED APPETITE [None]
  - TACHYCARDIA FOETAL [None]
  - DRUG EXPOSURE DURING PREGNANCY [None]
  - INSOMNIA [None]
  - ANXIETY [None]
  - MATERNAL DRUGS AFFECTING FOETUS [None]
